FAERS Safety Report 6244876-4 (Version None)
Quarter: 2009Q2

REPORT INFORMATION
  Report Type: 
  Country: None (occurrence: None)
  Receive Date: 20090625
  Receipt Date: 20090617
  Transmission Date: 20091009
  Serious: Yes (Hospitalization)
  Sender: FDA-Public Use
  Company Number: B0571675A

PATIENT
  Sex: Female

DRUGS (6)
  1. PAXIL [Suspect]
     Indication: DEPRESSION
     Route: 048
     Dates: start: 20090107, end: 20090213
  2. RESLIN [Concomitant]
     Indication: DEPRESSION
     Dosage: 100MG PER DAY
     Route: 048
     Dates: start: 20081223, end: 20090331
  3. CONTOMIN [Concomitant]
     Route: 065
  4. TEGRETOL [Concomitant]
     Route: 048
     Dates: start: 20090201
  5. ADOAIR [Concomitant]
     Indication: ASTHMA
     Dosage: 250MCG PER DAY
     Route: 055
     Dates: start: 20081212
  6. LEVOMEPROMAZINE MALEATE [Concomitant]
     Route: 048
     Dates: start: 20090201

REACTIONS (5)
  - AGGRESSION [None]
  - ANXIETY [None]
  - IMPULSIVE BEHAVIOUR [None]
  - IRRITABILITY [None]
  - MOOD ALTERED [None]
